FAERS Safety Report 25057818 (Version 1)
Quarter: 2025Q1

REPORT INFORMATION
  Report Type: Spontaneous
  Country: JP (occurrence: JP)
  Receive Date: 20250310
  Receipt Date: 20250310
  Transmission Date: 20250408
  Serious: Yes (Other)
  Sender: ALEXION PHARMACEUTICALS
  Company Number: JP-ASTRAZENECA-250021083_010810_P_1

PATIENT
  Age: 55 Year

DRUGS (8)
  1. GEFITINIB [Suspect]
     Active Substance: GEFITINIB
     Indication: Lung adenocarcinoma
     Dosage: 250 MILLIGRAM, QD
  2. GEFITINIB [Suspect]
     Active Substance: GEFITINIB
     Dosage: 250 MILLIGRAM, QD
  3. GEFITINIB [Suspect]
     Active Substance: GEFITINIB
     Dosage: 250 MILLIGRAM, QD
  4. GEFITINIB [Suspect]
     Active Substance: GEFITINIB
     Dosage: 250 MILLIGRAM, QD
  5. TARCEVA [Concomitant]
     Active Substance: ERLOTINIB HYDROCHLORIDE
     Indication: Lung adenocarcinoma
     Route: 065
  6. PEMETREXED [Concomitant]
     Active Substance: PEMETREXED
     Indication: Lung adenocarcinoma
     Route: 065
  7. Ts [Concomitant]
     Indication: Lung adenocarcinoma
     Route: 065
  8. VINORELBINE TARTRATE [Concomitant]
     Active Substance: VINORELBINE TARTRATE
     Indication: Lung adenocarcinoma
     Route: 065

REACTIONS (3)
  - Malignant neoplasm progression [Unknown]
  - Metastases to lymph nodes [Unknown]
  - Metastases to bone [Unknown]
